FAERS Safety Report 16394323 (Version 2)
Quarter: 2019Q2

REPORT INFORMATION
  Report Type: Spontaneous
  Country: JP (occurrence: JP)
  Receive Date: 20190605
  Receipt Date: 20190613
  Transmission Date: 20190711
  Serious: Yes (Other)
  Sender: FDA-Public Use
  Company Number: JP-PFIZER INC-2019235043

PATIENT
  Age: 67 Year
  Sex: Male

DRUGS (1)
  1. MEROPEN [Suspect]
     Active Substance: MEROPENEM
     Dosage: UNK
     Route: 041

REACTIONS (6)
  - Neuropathy peripheral [Unknown]
  - Weight decreased [Unknown]
  - Purpura [Unknown]
  - Arthralgia [Unknown]
  - Hypertension [Unknown]
  - Myalgia [Unknown]
